FAERS Safety Report 10638958 (Version 1)
Quarter: 2014Q4

REPORT INFORMATION
  Report Type: Spontaneous
  Country: US (occurrence: US)
  Receive Date: 20141208
  Receipt Date: 20141208
  Transmission Date: 20150529
  Serious: Yes (Life-Threatening, Hospitalization, Other)
  Sender: FDA-Public Use
  Company Number: US-GLAXOSMITHKLINE-US2014GSK032728

PATIENT
  Age: 50 Year
  Sex: Female

DRUGS (3)
  1. LAMICTAL [Suspect]
     Active Substance: LAMOTRIGINE
     Indication: BIPOLAR DISORDER
     Dosage: 100 MG, BID
     Route: 048
     Dates: start: 20120413
  2. XANAX [Concomitant]
     Active Substance: ALPRAZOLAM
  3. SONATA [Concomitant]
     Active Substance: ZALEPLON

REACTIONS (3)
  - Hypotension [Recovered/Resolved]
  - Chest pain [Recovered/Resolved]
  - Loss of consciousness [Recovered/Resolved]
